FAERS Safety Report 6573332-9 (Version None)
Quarter: 2010Q1

REPORT INFORMATION
  Report Type: 
  Country: None (occurrence: None)
  Receive Date: 20100208
  Receipt Date: 20100127
  Transmission Date: 20100710
  Serious: Yes (Life-Threatening)
  Sender: FDA-Public Use
  Company Number: DE-PFIZER INC-2010010698

PATIENT
  Age: 48 Year
  Sex: Female
  Weight: 73 kg

DRUGS (6)
  1. VFEND [Suspect]
     Indication: ASPERGILLOSIS
     Dosage: 400 MG, 2X/DAY
     Route: 048
     Dates: start: 20081201
  2. VALGANCICLOVIR [Concomitant]
     Indication: ANTIVIRAL PROPHYLAXIS
     Dosage: 1 DF, 2X/DAY
     Dates: start: 20081101
  3. SANDIMMUNE [Concomitant]
     Indication: LUNG TRANSPLANT
     Dosage: 35-0-25
     Dates: start: 20081101
  4. CIPRALEX [Concomitant]
     Indication: ANXIETY DISORDER
     Dosage: 10 MG, 1X/DAY
  5. COTRIM DS [Concomitant]
     Indication: PROPHYLAXIS
     Dosage: UNK
  6. PREDNISOLONE [Concomitant]
     Dosage: 7.5 MG, UNK

REACTIONS (5)
  - BREAST PAIN [None]
  - DYSPNOEA [None]
  - NAUSEA [None]
  - PULMONARY EMBOLISM [None]
  - VISION BLURRED [None]
